FAERS Safety Report 9434643 (Version 1)
Quarter: 2013Q3

REPORT INFORMATION
  Report Type: Spontaneous
  Country: US (occurrence: US)
  Receive Date: 20130801
  Receipt Date: 20130801
  Transmission Date: 20140515
  Serious: Yes (Hospitalization)
  Sender: FDA-Public Use
  Company Number: US-BAYER-2013-090259

PATIENT
  Age: 28 Year
  Sex: Female

DRUGS (3)
  1. OCELLA [Suspect]
  2. YASMIN [Suspect]
     Indication: HIRSUTISM
  3. MOTRIN [Concomitant]
     Indication: PAIN
     Dosage: UNK
     Route: 048
     Dates: start: 20111001

REACTIONS (2)
  - Pulmonary embolism [Recovered/Resolved]
  - Pulmonary artery dilatation [Recovered/Resolved]
